FAERS Safety Report 16324766 (Version 1)
Quarter: 2019Q2

REPORT INFORMATION
  Report Type: Spontaneous
  Country: US (occurrence: US)
  Receive Date: 20190517
  Receipt Date: 20190517
  Transmission Date: 20190711
  Serious: Yes (Other)
  Sender: FDA-Public Use
  Company Number: PHEH2019US020368

PATIENT

DRUGS (1)
  1. GLATOPA [Suspect]
     Active Substance: GLATIRAMER ACETATE
     Indication: MULTIPLE SCLEROSIS
     Route: 065

REACTIONS (14)
  - Swelling face [Unknown]
  - Paraesthesia [Unknown]
  - Fatigue [Unknown]
  - Acne [Unknown]
  - Injection site swelling [Unknown]
  - Depression [Unknown]
  - Clumsiness [Unknown]
  - Ocular discomfort [Unknown]
  - Product substitution issue [Unknown]
  - Hypoaesthesia [Unknown]
  - Injection site pain [Unknown]
  - Product formulation issue [Unknown]
  - Cognitive disorder [Unknown]
  - Movement disorder [Unknown]
